FAERS Safety Report 11177329 (Version 1)
Quarter: 2015Q2

REPORT INFORMATION
  Report Type: Spontaneous
  Country: US (occurrence: None)
  Receive Date: 20150515
  Receipt Date: 20150515
  Transmission Date: 20150821
  Serious: Yes (Other)
  Sender: FDA-Public Use
  Company Number: 118537

PATIENT
  Age: 29 Year
  Sex: Female
  Weight: 63.5 kg

DRUGS (1)
  1. CIMZIA [Suspect]
     Active Substance: CERTOLIZUMAB PEGOL
     Indication: CROHN^S DISEASE
     Dosage: 400 MG, 2X/WEEK, SUBCUTANEOUS
     Route: 058
     Dates: start: 201312

REACTIONS (2)
  - Drug ineffective [None]
  - Crohn^s disease [None]

NARRATIVE: CASE EVENT DATE: 201311
